FAERS Safety Report 13948162 (Version 1)
Quarter: 2017Q3

REPORT INFORMATION
  Report Type: Spontaneous
  Country: HK (occurrence: HK)
  Receive Date: 20170908
  Receipt Date: 20170908
  Transmission Date: 20171128
  Serious: Yes (Hospitalization, Other)
  Sender: FDA-Public Use
  Company Number: HK-ACCORD-058215

PATIENT
  Age: 35 Year
  Sex: Female

DRUGS (2)
  1. CHLORPHENAMINE [Suspect]
     Active Substance: CHLORPHENIRAMINE MALEATE
  2. AMITRIPTYLINE [Suspect]
     Active Substance: AMITRIPTYLINE

REACTIONS (8)
  - Depressed level of consciousness [Unknown]
  - Pneumonia [Unknown]
  - Sinus tachycardia [Unknown]
  - Maternal exposure during pregnancy [Unknown]
  - Electrocardiogram QRS complex prolonged [Unknown]
  - Sedation [Unknown]
  - Hypotension [Unknown]
  - Toxicity to various agents [Unknown]
